FAERS Safety Report 13935043 (Version 3)
Quarter: 2017Q4

REPORT INFORMATION
  Report Type: Spontaneous
  Country: PT (occurrence: PT)
  Receive Date: 20170905
  Receipt Date: 20171221
  Transmission Date: 20180320
  Serious: Yes (Life-Threatening, Hospitalization, Other)
  Sender: FDA-Public Use
  Company Number: PT-AUROBINDO-AUR-APL-2017-39923

PATIENT
  Age: 70 Year
  Sex: Female

DRUGS (21)
  1. VALPROIC ACID. [Concomitant]
     Active Substance: VALPROIC ACID
     Dosage: ()
     Route: 065
  2. TRIHEXYPHENIDYL [Concomitant]
     Active Substance: TRIHEXYPHENIDYL
     Indication: PRODUCT USED FOR UNKNOWN INDICATION
     Route: 065
  3. LEVOTHYROXINE SODIUM. [Concomitant]
     Active Substance: LEVOTHYROXINE SODIUM
     Indication: PRODUCT USED FOR UNKNOWN INDICATION
     Dosage: UNK ()
     Route: 065
  4. DULOXETINE. [Suspect]
     Active Substance: DULOXETINE
     Indication: DEPRESSION
     Dosage: ()
     Route: 065
  5. BROMAZEPAM [Suspect]
     Active Substance: BROMAZEPAM
     Indication: DEPRESSION
     Dosage: ()
     Route: 065
  6. CLOMIPRAMINE [Suspect]
     Active Substance: CLOMIPRAMINE
     Indication: DEPRESSION
     Dosage: ()
     Route: 065
  7. DULOXETINE. [Suspect]
     Active Substance: DULOXETINE
     Indication: ANTIDEPRESSANT THERAPY
     Route: 065
  8. VENLAFAXINE [Suspect]
     Active Substance: VENLAFAXINE HYDROCHLORIDE
     Indication: DEPRESSION
     Dosage: ()
     Route: 065
  9. LORAZEPAM. [Suspect]
     Active Substance: LORAZEPAM
     Indication: DEPRESSION
     Dosage: ()
     Route: 065
  10. DIAZEPAM. [Suspect]
     Active Substance: DIAZEPAM
     Indication: DEPRESSION
     Dosage: ()
     Route: 065
  11. VENLAFAXINE [Suspect]
     Active Substance: VENLAFAXINE HYDROCHLORIDE
     Indication: ANTIDEPRESSANT THERAPY
     Route: 065
  12. BROMAZEPAM [Suspect]
     Active Substance: BROMAZEPAM
     Route: 065
  13. BROMAZEPAM [Suspect]
     Active Substance: BROMAZEPAM
     Indication: ANTIDEPRESSANT THERAPY
     Dosage: ()
     Route: 065
  14. LORAZEPAM. [Suspect]
     Active Substance: LORAZEPAM
     Indication: ANTIDEPRESSANT THERAPY
     Route: 065
  15. TRIHEXYPHENIDYL [Concomitant]
     Active Substance: TRIHEXYPHENIDYL
     Dosage: ()
     Route: 065
  16. SIMVASTATIN. [Concomitant]
     Active Substance: SIMVASTATIN
     Indication: PRODUCT USED FOR UNKNOWN INDICATION
     Dosage: UNK ()
  17. CLOPIDOGREL [Concomitant]
     Active Substance: CLOPIDOGREL BISULFATE
     Indication: PRODUCT USED FOR UNKNOWN INDICATION
     Dosage: UNK ()
     Route: 065
  18. VALPROIC ACID. [Concomitant]
     Active Substance: VALPROIC ACID
     Indication: PRODUCT USED FOR UNKNOWN INDICATION
     Route: 065
  19. CLOMIPRAMINE [Suspect]
     Active Substance: CLOMIPRAMINE
     Indication: ANTIDEPRESSANT THERAPY
     Route: 065
  20. IDEBENONE [Concomitant]
     Active Substance: IDEBENONE
     Indication: PRODUCT USED FOR UNKNOWN INDICATION
     Dosage: UNK ()
     Route: 065
  21. DIAZEPAM. [Suspect]
     Active Substance: DIAZEPAM
     Indication: ANTIDEPRESSANT THERAPY
     Route: 065

REACTIONS (7)
  - Drug screen false positive [Unknown]
  - Coma [Recovered/Resolved]
  - Acute kidney injury [Unknown]
  - Respiratory depression [Unknown]
  - Hypernatraemia [Unknown]
  - Overdose [Unknown]
  - Hyperchloraemia [Unknown]
